FAERS Safety Report 16980217 (Version 1)
Quarter: 2019Q4

REPORT INFORMATION
  Report Type: Spontaneous
  Country: US (occurrence: US)
  Receive Date: 20191031
  Receipt Date: 20191031
  Transmission Date: 20200122
  Serious: No
  Sender: FDA-Public Use
  Company Number: US-PFIZER INC-2019470728

PATIENT
  Age: 60 Year
  Sex: Female

DRUGS (3)
  1. IBUPROFEN. [Suspect]
     Active Substance: IBUPROFEN
     Dosage: UNK
  2. OMNIPAQUE [Suspect]
     Active Substance: IOHEXOL
     Dosage: UNK
  3. ISOVUE [Suspect]
     Active Substance: IOPAMIDOL
     Dosage: UNK

REACTIONS (1)
  - Drug hypersensitivity [Unknown]
